FAERS Safety Report 22032308 (Version 3)
Quarter: 2023Q2

REPORT INFORMATION
  Report Type: Spontaneous
  Country: JP (occurrence: JP)
  Receive Date: 20230224
  Receipt Date: 20230402
  Transmission Date: 20230722
  Serious: Yes (Other)
  Sender: FDA-Public Use
  Company Number: JP-ONO-2023JP004376

PATIENT
  Age: 52 Year
  Sex: Male

DRUGS (2)
  1. YERVOY [Suspect]
     Active Substance: IPILIMUMAB
     Indication: Metastatic renal cell carcinoma
     Route: 041
     Dates: start: 20220203
  2. OPDIVO [Suspect]
     Active Substance: NIVOLUMAB
     Indication: Metastatic renal cell carcinoma
     Route: 041
     Dates: start: 20220203

REACTIONS (2)
  - Pancreatitis [Recovered/Resolved]
  - Immune-mediated cystitis [Recovered/Resolved]

NARRATIVE: CASE EVENT DATE: 20220303
